FAERS Safety Report 11977007 (Version 1)
Quarter: 2016Q1

REPORT INFORMATION
  Report Type: Spontaneous
  Country: US (occurrence: US)
  Receive Date: 20160129
  Receipt Date: 20160129
  Transmission Date: 20160526
  Serious: No
  Sender: FDA-Public Use
  Company Number: US-PERRIGO-15US003290

PATIENT
  Age: 16 Year
  Sex: Female
  Weight: 56.69 kg

DRUGS (1)
  1. IBUPROFEN AND DIPHENHYDRAMINE CITRATE [Suspect]
     Active Substance: DIPHENHYDRAMINE CITRATE\IBUPROFEN
     Indication: INSOMNIA
     Dosage: 8 TABLETS, SINGLE AT MIDNIGHT
     Route: 048
     Dates: start: 20150322, end: 20150322

REACTIONS (5)
  - Somnolence [Recovered/Resolved]
  - Blood bilirubin increased [Unknown]
  - Disturbance in attention [Recovered/Resolved]
  - Off label use [Recovered/Resolved]
  - Fatigue [Recovered/Resolved]

NARRATIVE: CASE EVENT DATE: 20150323
